FAERS Safety Report 21027430 (Version 2)
Quarter: 2022Q3

REPORT INFORMATION
  Report Type: Spontaneous
  Country: CZ (occurrence: CZ)
  Receive Date: 20220630
  Receipt Date: 20220701
  Transmission Date: 20221027
  Serious: Yes (Other)
  Sender: FDA-Public Use
  Company Number: CZ-002147023-NVSC2022CZ139788

PATIENT
  Sex: Male

DRUGS (4)
  1. OXALIPLATIN [Suspect]
     Active Substance: OXALIPLATIN
     Indication: Colorectal cancer
     Dosage: UNK, CYCLE (UNK UNK, CYCLIC, 12 CYCLES OF FOLFOX)
     Route: 065
     Dates: start: 201806, end: 201811
  2. LEUCOVORIN CALCIUM [Suspect]
     Active Substance: LEUCOVORIN CALCIUM
     Indication: Colorectal cancer
     Dosage: UNK UNK, CYCLE (UNK UNK, CYCLIC)
     Route: 065
     Dates: start: 201806, end: 201811
  3. FLUOROURACIL [Suspect]
     Active Substance: FLUOROURACIL
     Indication: Colorectal cancer metastatic
     Dosage: UNK UNK, CYCLE (UNK, CYCLIC)
     Route: 065
     Dates: start: 201806, end: 201811
  4. LEUCOVORIN [Suspect]
     Active Substance: LEUCOVORIN
     Dosage: UNK, CYCLE
     Route: 065
     Dates: start: 201806, end: 201811

REACTIONS (2)
  - Neurotoxicity [Unknown]
  - Colorectal cancer metastatic [Unknown]

NARRATIVE: CASE EVENT DATE: 20190401
